FAERS Safety Report 20590204 (Version 2)
Quarter: 2022Q2

REPORT INFORMATION
  Report Type: Spontaneous
  Country: BR (occurrence: BR)
  Receive Date: 20220314
  Receipt Date: 20220405
  Transmission Date: 20220721
  Serious: Yes (Other)
  Sender: FDA-Public Use
  Company Number: BR-BAYER-2022A035554

PATIENT
  Age: 37 Year
  Sex: Female

DRUGS (3)
  1. MIRENA [Suspect]
     Active Substance: LEVONORGESTREL
     Indication: Contraception
     Dosage: 20?G/DAY
     Route: 015
     Dates: start: 20200826
  2. VITAMINA D [COLECALCIFEROL] [Concomitant]
  3. OMEGA-3 FATTY ACIDS [Concomitant]
     Active Substance: OMEGA-3 FATTY ACIDS

REACTIONS (14)
  - Demyelination [Not Recovered/Not Resolved]
  - Constipation [Not Recovered/Not Resolved]
  - Paraesthesia [Not Recovered/Not Resolved]
  - Insomnia [None]
  - Pollakiuria [None]
  - Vision blurred [None]
  - Paraesthesia [None]
  - Weight bearing difficulty [None]
  - Nausea [None]
  - Weight decreased [None]
  - Tremor [Not Recovered/Not Resolved]
  - Tremor [None]
  - Hypoaesthesia [None]
  - Electric shock sensation [None]

NARRATIVE: CASE EVENT DATE: 20211001
